FAERS Safety Report 6731768-7 (Version None)
Quarter: 2010Q2

REPORT INFORMATION
  Report Type: 
  Country: None (occurrence: None)
  Receive Date: 20100519
  Receipt Date: 20100507
  Transmission Date: 20101027
  Serious: Yes (Other)
  Sender: FDA-Public Use
  Company Number: SE-PFIZER INC-2010057661

PATIENT
  Age: 69 Year
  Sex: Female

DRUGS (7)
  1. AROMASIN [Suspect]
     Indication: BREAST CANCER
     Dosage: UNK
  2. ARIMIDEX [Suspect]
  3. AMLODIN [Concomitant]
     Dosage: UNK
  4. SELOKEN [Concomitant]
     Dosage: UNK
  5. ENALAPRIL [Concomitant]
     Dosage: UNK
  6. DIGOXIN [Concomitant]
     Dosage: UNK
  7. WARAN [Concomitant]
     Dosage: UNK

REACTIONS (8)
  - DRY MOUTH [None]
  - FIBROMYALGIA [None]
  - HOT FLUSH [None]
  - MOOD SWINGS [None]
  - MUSCULAR WEAKNESS [None]
  - MUSCULOSKELETAL DISCOMFORT [None]
  - PRURITUS [None]
  - VULVOVAGINAL DRYNESS [None]
